FAERS Safety Report 21563977 (Version 1)
Quarter: 2022Q4

REPORT INFORMATION
  Report Type: Spontaneous
  Country: CN (occurrence: None)
  Receive Date: 20221108
  Receipt Date: 20221108
  Transmission Date: 20230113
  Serious: Yes (Life-Threatening)
  Sender: FDA-Public Use
  Company Number: CN-ROCHE-3214125

PATIENT
  Age: 47 Year
  Sex: Female
  Weight: 60 kg

DRUGS (1)
  1. TRASTUZUMAB [Suspect]
     Active Substance: TRASTUZUMAB
     Indication: Breast cancer
     Route: 041
     Dates: start: 20220927, end: 20220927

REACTIONS (3)
  - Palpitations [Recovering/Resolving]
  - Chills [Recovering/Resolving]
  - Convulsions local [Recovering/Resolving]

NARRATIVE: CASE EVENT DATE: 20220927
